FAERS Safety Report 5052730-9 (Version None)
Quarter: 2006Q3

REPORT INFORMATION
  Report Type: 
  Country: None (occurrence: None)
  Receive Date: 20060717
  Receipt Date: 20060102
  Transmission Date: 20061208
  Serious: Yes (Hospitalization)
  Sender: FDA-Public Use
  Company Number: NL-ROCHE-430293

PATIENT
  Age: 70 Year
  Sex: Female

DRUGS (4)
  1. CAPECITABINE [Suspect]
     Dosage: GIVEN FROM DAYS ONE TO FOURTEEN OF A THREE WEEK CYCLE.
     Route: 048
     Dates: start: 20051201
  2. AVASTIN [Suspect]
     Route: 042
     Dates: start: 20051201
  3. OXALIPLATIN [Suspect]
     Route: 042
     Dates: start: 20051201
  4. PRIMPERAN TAB [Concomitant]

REACTIONS (3)
  - DEHYDRATION [None]
  - DIARRHOEA [None]
  - HYPERCALCAEMIA [None]
